FAERS Safety Report 17630270 (Version 1)
Quarter: 2020Q2

REPORT INFORMATION
  Report Type: Spontaneous
  Country: MX (occurrence: MX)
  Receive Date: 20200406
  Receipt Date: 20200406
  Transmission Date: 20200713
  Serious: Yes (Hospitalization, Other)
  Sender: FDA-Public Use
  Company Number: NVSC2020MX091045

PATIENT
  Age: 65 Year
  Sex: Female

DRUGS (1)
  1. IMATINIB. [Suspect]
     Active Substance: IMATINIB MESYLATE
     Indication: CHRONIC MYELOID LEUKAEMIA
     Dosage: UNK
     Route: 065

REACTIONS (12)
  - Major depression [Unknown]
  - Platelet count increased [Unknown]
  - Acute kidney injury [Unknown]
  - Pyrexia [Unknown]
  - C-reactive protein increased [Unknown]
  - Acute respiratory failure [Unknown]
  - Atypical pneumonia [Unknown]
  - Blood calcitonin increased [Unknown]
  - Blood albumin decreased [Unknown]
  - Bacteraemia [Unknown]
  - Leptospirosis [Unknown]
  - Uveitis [Unknown]
